FAERS Safety Report 4845039-7 (Version None)
Quarter: 2005Q4

REPORT INFORMATION
  Report Type: 
  Country: None (occurrence: None)
  Receive Date: 20051205
  Receipt Date: 20051026
  Transmission Date: 20060501
  Serious: Yes (Hospitalization, Other)
  Sender: FDA-Public Use
  Company Number: JP-MERCK-0511USA00363

PATIENT
  Age: 71 Year
  Sex: Male

DRUGS (13)
  1. ALEVIATIN [Suspect]
     Indication: CONVULSION
     Route: 041
     Dates: start: 20050618, end: 20050626
  2. MODACIN [Suspect]
     Indication: PNEUMONIA
     Route: 041
     Dates: start: 20050614, end: 20050630
  3. OMEPRAL [Concomitant]
     Indication: PROPHYLAXIS
     Route: 042
     Dates: start: 20050607, end: 20050704
  4. PEPCID [Suspect]
     Route: 041
     Dates: start: 20050614, end: 20050706
  5. TARGOCID [Suspect]
     Indication: PNEUMONIA STAPHYLOCOCCAL
     Route: 041
     Dates: start: 20050630, end: 20050630
  6. TARGOCID [Suspect]
     Route: 041
     Dates: start: 20050704, end: 20050706
  7. TARGOCID [Suspect]
     Route: 041
     Dates: start: 20050706, end: 20050713
  8. TARGOCID [Suspect]
     Route: 041
     Dates: start: 20050701, end: 20050704
  9. RADICUT [Concomitant]
     Indication: CEREBRAL INFARCTION
     Route: 042
     Dates: start: 20050618, end: 20050624
  10. GLYCEOL [Concomitant]
     Indication: BRAIN OEDEMA
     Route: 042
     Dates: start: 20050617, end: 20050703
  11. DALACIN [Suspect]
     Indication: PNEUMONIA
     Route: 041
     Dates: start: 20050623, end: 20050630
  12. FLUCONAZOLE [Suspect]
     Indication: SYSTEMIC CANDIDA
     Route: 041
     Dates: start: 20050701, end: 20050721
  13. HABEKACIN [Suspect]
     Route: 041
     Dates: start: 20050721, end: 20050804

REACTIONS (14)
  - ALANINE AMINOTRANSFERASE INCREASED [None]
  - ASPARTATE AMINOTRANSFERASE INCREASED [None]
  - BLOOD PRESSURE DECREASED [None]
  - CANDIDIASIS [None]
  - CEREBRAL INFARCTION [None]
  - DEPRESSED LEVEL OF CONSCIOUSNESS [None]
  - DYSPHAGIA [None]
  - EATING DISORDER [None]
  - GAMMA-GLUTAMYLTRANSFERASE INCREASED [None]
  - HEMIPLEGIA [None]
  - HEPATIC FUNCTION ABNORMAL [None]
  - PNEUMONIA STAPHYLOCOCCAL [None]
  - PYREXIA [None]
  - RENAL FAILURE ACUTE [None]
